FAERS Safety Report 7464068-0 (Version None)
Quarter: 2011Q2

REPORT INFORMATION
  Report Type: 
  Country: None (occurrence: None)
  Receive Date: 20110506
  Receipt Date: 20100913
  Transmission Date: 20111010
  Serious: Yes (Death, Hospitalization)
  Sender: FDA-Public Use
  Company Number: GB-GENENTECH-233748

PATIENT
  Sex: Male

DRUGS (1)
  1. PULMOZYME [Suspect]
     Indication: PLEURAL INFECTION
     Dosage: UNK
     Route: 034
     Dates: start: 20051205

REACTIONS (3)
  - SEPSIS [None]
  - LUNG NEOPLASM MALIGNANT [None]
  - RENAL FAILURE [None]
